FAERS Safety Report 5392432-2 (Version None)
Quarter: 2007Q3

REPORT INFORMATION
  Report Type: 
  Country: None (occurrence: None)
  Receive Date: 20070720
  Receipt Date: 20070713
  Transmission Date: 20080115
  Serious: Yes (Other)
  Sender: FDA-Public Use
  Company Number: B0479929A

PATIENT
  Age: 30 Year
  Sex: Male

DRUGS (1)
  1. PAROXETINE HCL [Suspect]
     Dosage: 20MG PER DAY
     Route: 048
     Dates: start: 20050220, end: 20070609

REACTIONS (7)
  - DISTURBANCE IN ATTENTION [None]
  - DRUG WITHDRAWAL SYNDROME [None]
  - ERECTILE DYSFUNCTION [None]
  - MUSCLE TWITCHING [None]
  - PARAESTHESIA [None]
  - TENSION [None]
  - TENSION HEADACHE [None]
